FAERS Safety Report 4898360-0 (Version None)
Quarter: 2006Q1

REPORT INFORMATION
  Report Type: 
  Country: None (occurrence: None)
  Receive Date: 20060131
  Receipt Date: 20060131
  Transmission Date: 20060701
  Serious: Yes (Life-Threatening)
  Sender: FDA-Public Use
  Company Number: None

PATIENT
  Sex: Male
  Weight: 95.2554 kg

DRUGS (1)
  1. VIOXX [Suspect]
     Indication: PAIN
     Dosage: 25 MG DAILY PO
     Route: 048
     Dates: start: 20060120, end: 20060121

REACTIONS (1)
  - MYOCARDIAL INFARCTION [None]
